FAERS Safety Report 9265362 (Version 1)
Quarter: 2013Q2

REPORT INFORMATION
  Report Type: Report from Study
  Country: US (occurrence: US)
  Receive Date: 20130430
  Receipt Date: 20130430
  Transmission Date: 20140414
  Serious: Yes (Other)
  Sender: FDA-Public Use
  Company Number: US-RB-029649-11

PATIENT
  Age: 48 Year
  Sex: Male
  Weight: 121 kg

DRUGS (3)
  1. SUBOXONE TABLET [Suspect]
     Indication: DRUG DEPENDENCE
     Route: 060
     Dates: start: 201106, end: 201110
  2. SUBOXONE FILM [Suspect]
     Indication: DRUG DEPENDENCE
     Dosage: SUBOXONE FILM
     Route: 065
     Dates: start: 201110, end: 201204
  3. ELAVIL [Suspect]
     Indication: PROPHYLAXIS
     Dosage: AT THE BEDTIME
     Route: 048
     Dates: start: 201106, end: 201205

REACTIONS (3)
  - Weight increased [Recovered/Resolved]
  - Vision blurred [Recovered/Resolved]
  - Depression [Not Recovered/Not Resolved]
